FAERS Safety Report 8224730-9 (Version None)
Quarter: 2012Q1

REPORT INFORMATION
  Report Type: 
  Country: None (occurrence: None)
  Receive Date: 20120321
  Receipt Date: 20120314
  Transmission Date: 20120608
  Serious: No
  Sender: FDA-Public Use
  Company Number: PHHY2011DE102521

PATIENT
  Age: 72 Year
  Sex: Male
  Weight: 53 kg

DRUGS (5)
  1. CALCIVIT D [Concomitant]
     Dosage: 400/600/DAY
     Route: 048
  2. ASPIRIN [Concomitant]
     Indication: CAROTID ARTERIOSCLEROSIS
     Dosage: 100 MG, UNK
     Route: 048
     Dates: start: 20070726
  3. LEVOTHYROXINE SODIUM [Concomitant]
     Dosage: 100 UG PER DAY
     Route: 048
     Dates: start: 20070202
  4. SIMVASTATIN [Concomitant]
     Dosage: 20 MG,PER DAY
     Route: 048
     Dates: start: 20100608
  5. ZOLEDRONOC ACID [Suspect]
     Indication: OSTEOPOROSIS
     Dosage: 5 MG, UNK
     Route: 042
     Dates: start: 20111114

REACTIONS (1)
  - TOOTH DISORDER [None]
